FAERS Safety Report 20323687 (Version 1)
Quarter: 2022Q1

REPORT INFORMATION
  Report Type: Spontaneous
  Country: US (occurrence: None)
  Receive Date: 20220111
  Receipt Date: 20220111
  Transmission Date: 20220424
  Serious: No
  Sender: FDA-Public Use
  Company Number: None

PATIENT
  Age: 79 Year
  Sex: Female
  Weight: 64.86 kg

DRUGS (10)
  1. ACETAMINOPHEN\OXYCODONE HYDROCHLORIDE [Suspect]
     Active Substance: ACETAMINOPHEN\OXYCODONE HYDROCHLORIDE
     Indication: Arthralgia
     Dosage: FREQUENCY : TWICE A DAY;?
  2. ACETAMINOPHEN\OXYCODONE HYDROCHLORIDE [Suspect]
     Active Substance: ACETAMINOPHEN\OXYCODONE HYDROCHLORIDE
     Indication: Back pain
  3. TYLENOL [Concomitant]
     Active Substance: ACETAMINOPHEN
  4. ASPIRIN [Concomitant]
     Active Substance: ASPIRIN
  5. LASIX [Concomitant]
     Active Substance: FUROSEMIDE
  6. TOPROL XL [Concomitant]
     Active Substance: METOPROLOL SUCCINATE
  7. NITROGLYCERIN [Concomitant]
     Active Substance: NITROGLYCERIN
  8. OZEMPIC [Concomitant]
     Active Substance: SEMAGLUTIDE
  9. ALDACTONE [Concomitant]
     Active Substance: SPIRONOLACTONE
  10. Tresiba Inj [Concomitant]

REACTIONS (6)
  - Product substitution issue [None]
  - Drug ineffective [None]
  - Insurance issue [None]
  - Inability to afford medication [None]
  - Fall [None]
  - Atrial fibrillation [None]
